FAERS Safety Report 9601337 (Version 2)
Quarter: 2013Q4

REPORT INFORMATION
  Report Type: Report from Study
  Country: US (occurrence: US)
  Receive Date: 20131007
  Receipt Date: 20131024
  Transmission Date: 20140711
  Serious: Yes (Death, Hospitalization, Other)
  Sender: FDA-Public Use
  Company Number: GXBR2013US001772

PATIENT
  Age: 68 Year
  Sex: Female

DRUGS (5)
  1. ENOXAPARIN SODIUM [Suspect]
     Indication: THROMBOSIS
     Dosage: 90 MG, QD
     Route: 058
     Dates: start: 201305
  2. VITAMIN D3 [Concomitant]
     Indication: SUPPLEMENTATION THERAPY
     Dosage: UNK DF, UNK
  3. APOVIT C-VITAMIN [Concomitant]
     Indication: SUPPLEMENTATION THERAPY
     Dosage: UNK DF, UNK
  4. CALCIUM [Concomitant]
     Indication: SUPPLEMENTATION THERAPY
     Dosage: UNK DF, UNK
  5. MULTI-VIT [Concomitant]
     Indication: SUPPLEMENTATION THERAPY
     Dosage: UNK DF, UNK

REACTIONS (8)
  - Death [Fatal]
  - Sepsis [Unknown]
  - Dyspnoea [Unknown]
  - Loss of consciousness [Unknown]
  - Metastatic squamous cell carcinoma [Unknown]
  - Convulsion [Recovering/Resolving]
  - Urinary tract infection [Unknown]
  - Asthenia [Unknown]
